FAERS Safety Report 19378719 (Version 2)
Quarter: 2021Q3

REPORT INFORMATION
  Report Type: Spontaneous
  Country: US (occurrence: US)
  Receive Date: 20210606
  Receipt Date: 20210902
  Transmission Date: 20211014
  Serious: No
  Sender: FDA-Public Use
  Company Number: US-CELGENEUS-USA-20210507450

PATIENT
  Age: 69 Year
  Sex: Female

DRUGS (18)
  1. VITAMIN D [Concomitant]
     Active Substance: VITAMIN D NOS
     Indication: SUPPLEMENTATION THERAPY
     Route: 048
  2. LEVOTHYROXINE. [Concomitant]
     Active Substance: LEVOTHYROXINE
     Indication: HYPOTHYROIDISM
     Route: 048
  3. REVLIMID [Suspect]
     Active Substance: LENALIDOMIDE
     Indication: PLASMA CELL MYELOMA
     Dosage: 15 MILLIGRAM
     Route: 048
     Dates: start: 201912
  4. PULMICORT TURBUHALER [Concomitant]
     Active Substance: BUDESONIDE
     Indication: ASTHMA
  5. SIMVASTATIN. [Concomitant]
     Active Substance: SIMVASTATIN
     Indication: HYPERCHOLESTEROLAEMIA
     Route: 048
  6. CITALOPRAM [Concomitant]
     Active Substance: CITALOPRAM HYDROBROMIDE
     Indication: DEPRESSION
     Route: 048
  7. REVLIMID [Suspect]
     Active Substance: LENALIDOMIDE
     Dosage: 10 MILLIGRAM
     Route: 048
     Dates: start: 202003
  8. MULTIVITAMIN [Concomitant]
     Active Substance: VITAMINS
     Indication: SUPPLEMENTATION THERAPY
     Route: 048
  9. CALCIUM [Concomitant]
     Active Substance: CALCIUM
     Indication: SUPPLEMENTATION THERAPY
     Route: 048
  10. DIPHENHYDRAMINE. [Concomitant]
     Active Substance: DIPHENHYDRAMINE
     Indication: MULTIPLE ALLERGIES
     Route: 048
  11. ACYCLOVIR. [Concomitant]
     Active Substance: ACYCLOVIR
     Indication: INFECTION PROPHYLAXIS
     Route: 048
  12. REVLIMID [Suspect]
     Active Substance: LENALIDOMIDE
     Dosage: 5 MILLIGRAM
     Route: 048
     Dates: start: 20210402
  13. ASPIRIN. [Concomitant]
     Active Substance: ASPIRIN
     Indication: CARDIOVASCULAR EVENT PROPHYLAXIS
     Route: 048
  14. LIDOCAINE. [Concomitant]
     Active Substance: LIDOCAINE
     Indication: PAIN
     Route: 061
  15. PULMICORT TURBUHALER [Concomitant]
     Active Substance: BUDESONIDE
     Indication: CHRONIC OBSTRUCTIVE PULMONARY DISEASE
     Route: 055
  16. ZOMETA [Concomitant]
     Active Substance: ZOLEDRONIC ACID
     Indication: PLASMA CELL MYELOMA
     Dosage: 4 MG/5ML
     Route: 041
  17. ALBUTEROL HFA [Concomitant]
     Active Substance: ALBUTEROL SULFATE
     Indication: DYSPNOEA
     Route: 055
  18. BACTRIM [Concomitant]
     Active Substance: SULFAMETHOXAZOLE\TRIMETHOPRIM
     Indication: INFECTION PROPHYLAXIS
     Dosage: 400?80 MG
     Route: 048

REACTIONS (3)
  - Fatigue [Recovering/Resolving]
  - White blood cell count decreased [Recovered/Resolved]
  - Diarrhoea [Recovered/Resolved]

NARRATIVE: CASE EVENT DATE: 20210505
